FAERS Safety Report 24358372 (Version 2)
Quarter: 2024Q3

REPORT INFORMATION
  Report Type: Spontaneous
  Country: IN (occurrence: IN)
  Receive Date: 20240924
  Receipt Date: 20240925
  Transmission Date: 20241016
  Serious: No
  Sender: SANDOZ
  Company Number: IN-SANDOZ-SDZ2024IN081366

PATIENT
  Sex: Male

DRUGS (2)
  1. MYFORTIC [Suspect]
     Active Substance: MYCOPHENOLATE SODIUM
     Indication: Renal transplant
     Dosage: 720 MG, QD
     Route: 048
  2. TACROLIMUS [Suspect]
     Active Substance: TACROLIMUS
     Indication: Renal transplant
     Dosage: 2.0 MG, BID (2.5 MG)
     Route: 048

REACTIONS (5)
  - Hypoalbuminaemia [Unknown]
  - Pain [Unknown]
  - Chest discomfort [Unknown]
  - Electrolyte imbalance [Unknown]
  - Off label use [Unknown]
